APPROVED DRUG PRODUCT: IDKIT:HP
Active Ingredient: CITRIC ACID; UREA C-13
Strength: 4GM;75MG
Dosage Form/Route: FOR SOLUTION, TABLET, FOR SOLUTION;ORAL
Application: N021314 | Product #001
Applicant: MERIDIAN BIOSCIENCE ISRAEL LTD
Approved: Dec 17, 2002 | RLD: Yes | RS: Yes | Type: RX